FAERS Safety Report 14940815 (Version 1)
Quarter: 2018Q2

REPORT INFORMATION
  Report Type: Spontaneous
  Country: DE (occurrence: DE)
  Receive Date: 20180525
  Receipt Date: 20180525
  Transmission Date: 20180711
  Serious: Yes (Life-Threatening, Hospitalization)
  Sender: FDA-Public Use
  Company Number: DE-BAUSCH-BL-2018-014526

PATIENT
  Age: 43 Year
  Sex: Female

DRUGS (1)
  1. FENOFIBRATE. [Suspect]
     Active Substance: FENOFIBRATE
     Indication: LYSOSOMAL ACID LIPASE DEFICIENCY
     Route: 065
     Dates: start: 201209

REACTIONS (1)
  - Therapy non-responder [Unknown]
